FAERS Safety Report 23143986 (Version 1)
Quarter: 2023Q4

REPORT INFORMATION
  Report Type: Spontaneous
  Country: FR (occurrence: FR)
  Receive Date: 20231103
  Receipt Date: 20231103
  Transmission Date: 20240110
  Serious: Yes (Life-Threatening, Hospitalization, Other)
  Sender: FDA-Public Use
  Company Number: None

PATIENT
  Age: 22 Year
  Sex: Male

DRUGS (10)
  1. SODIUM CHLORIDE [Suspect]
     Active Substance: SODIUM CHLORIDE
     Indication: Fluid replacement
     Route: 065
     Dates: start: 20230923, end: 20231011
  2. PROPOFOL [Suspect]
     Active Substance: PROPOFOL
     Indication: Sedation
     Dosage: 300 MG (MILLIGRAM) IN 1H (HOURS), DOSAGE TEXT - 300MG/H, OR 4MG/KG/H
     Route: 065
     Dates: start: 20230924, end: 20231002
  3. HYDROCORTISONE HEMISUCCINATE [Suspect]
     Active Substance: HYDROCORTISONE HEMISUCCINATE
     Indication: Endocrine disorder prophylaxis
     Dosage: 200 MG (MILLIGRAM) IN 24 H (HOURS)
     Route: 065
     Dates: start: 20230930, end: 20231005
  4. ATRACURIUM [Suspect]
     Active Substance: ATRACURIUM
     Indication: Sedation
     Route: 065
     Dates: start: 20231003, end: 20231006
  5. NIMBEX [Suspect]
     Active Substance: CISATRACURIUM BESYLATE
     Indication: Sedation
     Route: 065
     Dates: start: 20230924, end: 20231003
  6. MIDAZOLAM [Concomitant]
     Active Substance: MIDAZOLAM
     Indication: Sedation
     Route: 065
     Dates: start: 20230924, end: 20231006
  7. SUFENTANIL CITRATE [Concomitant]
     Active Substance: SUFENTANIL CITRATE
     Indication: Sedation
     Route: 065
     Dates: start: 20230925, end: 20231006
  8. THIOPENTAL SODIUM [Concomitant]
     Active Substance: THIOPENTAL SODIUM
     Indication: Sedation
     Dosage: 3 G (GRAM) IN 24 H (HOURS), DOSAGE TEXT - 3G/D
     Route: 065
     Dates: start: 20230925, end: 20231004
  9. NOREPINEPHRINE [Concomitant]
     Active Substance: NOREPINEPHRINE
     Indication: Haemodynamic instability
     Route: 065
     Dates: start: 20230924, end: 20231002
  10. CEFEPIME [Concomitant]
     Active Substance: CEFEPIME HYDROCHLORIDE
     Indication: Infection
     Route: 065
     Dates: start: 20230929, end: 20231004

REACTIONS (5)
  - Rhabdomyolysis [Not Recovered/Not Resolved]
  - Hyperkalaemia [Not Recovered/Not Resolved]
  - Lactic acidosis [Not Recovered/Not Resolved]
  - Hypertriglyceridaemia [Not Recovered/Not Resolved]
  - Myoglobinaemia [Not Recovered/Not Resolved]

NARRATIVE: CASE EVENT DATE: 20230926
